FAERS Safety Report 6984053-2 (Version None)
Quarter: 2010Q3

REPORT INFORMATION
  Report Type: 
  Country: None (occurrence: None)
  Receive Date: 20100915
  Receipt Date: 20090507
  Transmission Date: 20110219
  Serious: No
  Sender: FDA-Public Use
  Company Number: US-WYE-H09271909

PATIENT
  Sex: Female
  Weight: 59.02 kg

DRUGS (9)
  1. PRISTIQ [Suspect]
     Indication: DEPRESSION
     Dosage: UNKNOWN
     Route: 048
     Dates: start: 20081001, end: 20081201
  2. PRISTIQ [Suspect]
     Indication: ANXIETY
     Route: 048
     Dates: start: 20081201, end: 20090426
  3. PRISTIQ [Suspect]
     Route: 048
     Dates: start: 20090427
  4. SYMBICORT [Concomitant]
  5. KLONOPIN [Concomitant]
  6. FLUCONAZOLE [Concomitant]
  7. LUPRON [Concomitant]
  8. CLONIDINE [Concomitant]
  9. PROVENTIL [Concomitant]

REACTIONS (16)
  - AMNESIA [None]
  - ASTHMA [None]
  - CHEST PAIN [None]
  - CONSTIPATION [None]
  - DECREASED APPETITE [None]
  - DISTURBANCE IN ATTENTION [None]
  - DRUG WITHDRAWAL SYNDROME [None]
  - FAECALOMA [None]
  - HEADACHE [None]
  - INSOMNIA [None]
  - RASH [None]
  - RESTLESSNESS [None]
  - TREMOR [None]
  - URINARY INCONTINENCE [None]
  - URTICARIA [None]
  - WEIGHT DECREASED [None]
